FAERS Safety Report 8235789-7 (Version None)
Quarter: 2012Q1

REPORT INFORMATION
  Report Type: 
  Country: None (occurrence: None)
  Receive Date: 20120326
  Receipt Date: 20120320
  Transmission Date: 20120608
  Serious: Yes (Other)
  Sender: FDA-Public Use
  Company Number: US-PFIZER INC-2012073015

PATIENT
  Sex: Female

DRUGS (2)
  1. LYRICA [Suspect]
     Dosage: UNK
  2. LYRICA [Suspect]
     Dosage: 75 MG, 3X/DAY

REACTIONS (7)
  - CHOKING [None]
  - COUGH [None]
  - DYSPNOEA [None]
  - FLUID RETENTION [None]
  - CHRONIC OBSTRUCTIVE PULMONARY DISEASE [None]
  - ASTHMA [None]
  - FEAR [None]
